FAERS Safety Report 4444105-8 (Version None)
Quarter: 2004Q3

REPORT INFORMATION
  Report Type: 
  Country: None (occurrence: None)
  Receive Date: 20040729
  Receipt Date: 20030815
  Transmission Date: 20050211
  Serious: Yes (Hospitalization)
  Sender: FDA-Public Use
  Company Number: US-JNJFOC-20030803681

PATIENT
  Age: 22 Year
  Sex: Male

DRUGS (2)
  1. RISPERDAL [Suspect]
     Indication: SCHIZOPHRENIA
     Dosage: 2 MG, 1 IN 1 DAY; ORAL
     Route: 048
     Dates: start: 20030808
  2. RISPERDAL [Suspect]
     Indication: SCHIZOPHRENIA
     Dosage: 3 MG, 2 IN 1 DAY; ORAL
     Route: 048
     Dates: start: 19990101

REACTIONS (3)
  - EXTRAPYRAMIDAL DISORDER [None]
  - HALLUCINATION, AUDITORY [None]
  - THERAPEUTIC RESPONSE DECREASED [None]
